FAERS Safety Report 4791557-X (Version None)
Quarter: 2005Q4

REPORT INFORMATION
  Report Type: 
  Country: None (occurrence: None)
  Receive Date: 20051007
  Receipt Date: 20050302
  Transmission Date: 20060501
  Serious: No
  Sender: FDA-Public Use
  Company Number: US-BRISTOL-MYERS SQUIBB COMPANY-12883443

PATIENT
  Age: 64 Year
  Sex: Female
  Weight: 82 kg

DRUGS (14)
  1. AVAPRO [Suspect]
     Indication: HYPERTENSION
     Route: 048
     Dates: start: 20050224
  2. ECOTRIN [Concomitant]
  3. FOLIC ACID [Concomitant]
  4. GLYBURIDE [Concomitant]
  5. KLOR-CON [Concomitant]
  6. LASIX [Concomitant]
  7. LOPRESSOR [Concomitant]
  8. NEURONTIN [Concomitant]
  9. NEXIUM [Concomitant]
  10. NORTRIPTYLINE HCL [Concomitant]
  11. PLAVIX [Concomitant]
  12. TRAZODONE HCL [Concomitant]
  13. VITAMIN B6 [Concomitant]
  14. VITAMIN B-12 [Concomitant]

REACTIONS (4)
  - ASTHENIA [None]
  - BLOOD PRESSURE INCREASED [None]
  - MUSCLE SPASMS [None]
  - MYALGIA [None]
